FAERS Safety Report 4431366-4 (Version None)
Quarter: 2004Q3

REPORT INFORMATION
  Report Type: 
  Country: None (occurrence: None)
  Receive Date: 20040820
  Receipt Date: 20040820
  Transmission Date: 20050211
  Serious: Yes (Life-Threatening, Hospitalization)
  Sender: FDA-Public Use
  Company Number: None

PATIENT
  Age: 56 Year
  Sex: Male
  Weight: 56.7 kg

DRUGS (3)
  1. DEMEROL [Suspect]
     Dosage: 50/25 PUSH IV
     Route: 040
     Dates: start: 20030523, end: 20030523
  2. PHENERGAN [Suspect]
  3. PEPCID [Concomitant]

REACTIONS (2)
  - CARDIO-RESPIRATORY ARREST [None]
  - MYOCARDIAL INFARCTION [None]
